FAERS Safety Report 5569547-9 (Version None)
Quarter: 2007Q4

REPORT INFORMATION
  Report Type: 
  Country: None (occurrence: None)
  Receive Date: 20071220
  Receipt Date: 20071218
  Transmission Date: 20080405
  Serious: Yes (Death, Congenital Anomaly)
  Sender: FDA-Public Use
  Company Number: FR-WYE-G00798507

PATIENT
  Sex: Male

DRUGS (4)
  1. EFFEXOR [Suspect]
     Indication: BIPOLAR I DISORDER
     Dosage: UNKNOWN
     Route: 064
     Dates: end: 20070301
  2. TERCIAN [Suspect]
     Indication: BIPOLAR I DISORDER
     Dosage: UNKNOWN
     Route: 064
     Dates: end: 20070301
  3. LARGACTIL [Concomitant]
     Indication: BIPOLAR I DISORDER
     Route: 064
     Dates: start: 20070301, end: 20070501
  4. DEPAKOTE [Suspect]
     Indication: BIPOLAR I DISORDER
     Dosage: UNKNOWN
     Route: 064
     Dates: end: 20070301

REACTIONS (11)
  - BRAIN HERNIATION [None]
  - CEREBRAL VENTRICLE DILATATION [None]
  - DELAYED FONTANELLE CLOSURE [None]
  - DRUG EXPOSURE DURING PREGNANCY [None]
  - FOETAL DISTRESS SYNDROME [None]
  - FOETAL GROWTH RETARDATION [None]
  - HYPOPERFUSION [None]
  - MACROCEPHALY [None]
  - RENAL APLASIA [None]
  - SPINA BIFIDA [None]
  - TALIPES [None]
